FAERS Safety Report 20391532 (Version 1)
Quarter: 2022Q1

REPORT INFORMATION
  Report Type: Spontaneous
  Country: US (occurrence: None)
  Receive Date: 20220128
  Receipt Date: 20220128
  Transmission Date: 20220423
  Serious: Yes (Hospitalization, Disabling)
  Sender: FDA-Public Use
  Company Number: None

PATIENT
  Age: 73 Year
  Sex: Female

DRUGS (19)
  1. CAPECITABINE [Suspect]
     Active Substance: CAPECITABINE
     Indication: Colorectal cancer
     Dosage: FREQUENCY : TWICE A DAY;?
     Route: 048
     Dates: start: 20210903
  2. IRON [Concomitant]
     Active Substance: IRON
  3. NYSTATIN [Concomitant]
     Active Substance: NYSTATIN
  4. ONDANSETRON [Concomitant]
     Active Substance: ONDANSETRON
  5. MIRALAX [Concomitant]
     Active Substance: POLYETHYLENE GLYCOL 3350
  6. PROCHLORPERAZINE [Concomitant]
     Active Substance: PROCHLORPERAZINE
  7. ALBUTEROL [Concomitant]
     Active Substance: ALBUTEROL
  8. BISACODYL [Concomitant]
     Active Substance: BISACODYL
  9. DICLOFENAC [Concomitant]
     Active Substance: DICLOFENAC
  10. DOCUSATE [Concomitant]
     Active Substance: DOCUSATE
  11. ELIQUIS [Concomitant]
     Active Substance: APIXABAN
  12. LEVOTHYROXINE [Concomitant]
     Active Substance: LEVOTHYROXINE
  13. MIRALAX [Concomitant]
     Active Substance: POLYETHYLENE GLYCOL 3350
  14. GUAIFENESIN AC SYRUP [Concomitant]
  15. LOPERAMIDE [Concomitant]
     Active Substance: LOPERAMIDE
  16. METOPROLOL [Concomitant]
     Active Substance: METOPROLOL
  17. VITAMINS [Concomitant]
     Active Substance: VITAMINS
  18. VITAMIN C [Concomitant]
     Active Substance: ASCORBIC ACID
  19. VITAMIN D [Concomitant]
     Active Substance: VITAMIN D NOS

REACTIONS (4)
  - Confusional state [None]
  - Asthenia [None]
  - Urinary incontinence [None]
  - Urinary tract infection [None]

NARRATIVE: CASE EVENT DATE: 20220125
